FAERS Safety Report 4697479-7 (Version None)
Quarter: 2005Q2

REPORT INFORMATION
  Report Type: 
  Country: None (occurrence: None)
  Receive Date: 20050621
  Receipt Date: 20050608
  Transmission Date: 20051028
  Serious: Yes (Hospitalization)
  Sender: FDA-Public Use
  Company Number: USA0506100011

PATIENT
  Age: 80 Year
  Sex: Female

DRUGS (1)
  1. FORTEO [Suspect]
     Indication: OSTEOPOROSIS
     Dates: start: 20050228

REACTIONS (4)
  - DIARRHOEA [None]
  - PHARMACEUTICAL PRODUCT COMPLAINT [None]
  - POST PROCEDURAL COMPLICATION [None]
  - SCAR [None]
